FAERS Safety Report 14389620 (Version 1)
Quarter: 2018Q1

REPORT INFORMATION
  Report Type: Report from Study
  Country: CA (occurrence: CA)
  Receive Date: 20180115
  Receipt Date: 20180115
  Transmission Date: 20180509
  Serious: Yes (Other)
  Sender: FDA-Public Use
  Company Number: CA-TAKEDA-2018TUS000834

PATIENT
  Age: 26 Year
  Sex: Female

DRUGS (3)
  1. VEDOLIZUMAB [Suspect]
     Active Substance: VEDOLIZUMAB
     Dosage: 300 MG, Q4WEEKS
     Route: 042
  2. SIMPONI [Concomitant]
     Active Substance: GOLIMUMAB
     Dosage: UNK
     Dates: start: 20160307
  3. VEDOLIZUMAB [Suspect]
     Active Substance: VEDOLIZUMAB
     Indication: COLITIS ULCERATIVE
     Dosage: 300 MG, UNK
     Route: 042
     Dates: start: 20150804

REACTIONS (7)
  - Precancerous cells present [Unknown]
  - Vulvovaginal inflammation [Unknown]
  - Vaginal haemorrhage [Unknown]
  - Cervix inflammation [Unknown]
  - Off label use [Unknown]
  - Cervix haemorrhage uterine [Unknown]
  - Abdominal pain lower [Unknown]

NARRATIVE: CASE EVENT DATE: 201710
